FAERS Safety Report 5997054-8 (Version None)
Quarter: 2008Q4

REPORT INFORMATION
  Report Type: 
  Country: None (occurrence: None)
  Receive Date: 20081212
  Receipt Date: 20081103
  Transmission Date: 20090506
  Serious: No
  Sender: FDA-Public Use
  Company Number: US-ABBOTT-08P-163-0485243-00

PATIENT
  Sex: Female
  Weight: 113.5 kg

DRUGS (23)
  1. HUMIRA [Suspect]
     Indication: PSORIASIS
     Route: 058
     Dates: start: 20080501, end: 20080818
  2. WARFARIN SODIUM [Suspect]
  3. EZETIMIBE [Concomitant]
     Indication: BLOOD CHOLESTEROL
     Route: 048
  4. PROVOCAL [Concomitant]
     Indication: BLOOD CHOLESTEROL
     Route: 048
  5. LEVOTHYROXINE SODIUM [Concomitant]
     Indication: THYROID DISORDER
     Route: 048
  6. MONTELUKAST SODIUM [Concomitant]
     Indication: HYPERSENSITIVITY
     Route: 048
  7. SERTRALINE [Concomitant]
     Indication: ANXIETY
     Route: 048
  8. COUMADIN [Concomitant]
     Indication: ATRIAL FIBRILLATION
     Dosage: BETWEEN 5 TO 10 MILLIGRAMS DAILY, DOSE VARIES
     Route: 048
  9. COUMADIN [Concomitant]
     Indication: CEREBROVASCULAR ACCIDENT
  10. IRON [Concomitant]
     Indication: MINERAL SUPPLEMENTATION
     Route: 048
  11. BISACODYL [Concomitant]
     Indication: PROPHYLAXIS
     Route: 048
     Dates: start: 20080901
  12. BISACODYL [Concomitant]
     Indication: CONSTIPATION PROPHYLAXIS
  13. LANSOPRAZOLE [Concomitant]
     Indication: GASTROOESOPHAGEAL REFLUX DISEASE
     Route: 048
  14. VERAPAMIL ER [Concomitant]
     Indication: HYPERTENSION
     Route: 048
  15. CONJUGATED ESTROGENS [Concomitant]
     Indication: HYSTERECTOMY
     Route: 048
  16. ALLOPURINOL [Concomitant]
     Indication: RENAL DISORDER
  17. LISINOPRIL [Concomitant]
     Indication: CARDIAC DISORDER
     Route: 048
  18. ISOSORBIDE MONONITRATE [Concomitant]
     Indication: CARDIAC DISORDER
     Route: 048
  19. CIRRUS [Concomitant]
     Indication: HYPERSENSITIVITY
     Route: 048
  20. METOPROLOL SUCCINATE [Concomitant]
     Indication: CARDIAC DISORDER
     Route: 048
  21. DYAZIDE [Concomitant]
     Indication: DIURETIC THERAPY
     Dosage: -25 DAILY
     Route: 048
  22. GLIPIZIDE [Concomitant]
     Indication: DIABETES MELLITUS
     Route: 048
  23. ACETYLSALICYLIC ACID SRT [Concomitant]
     Indication: CARDIAC DISORDER
     Route: 048
     Dates: start: 19970101

REACTIONS (1)
  - HAEMOGLOBIN DECREASED [None]
